FAERS Safety Report 7197994-0 (Version None)
Quarter: 2010Q4

REPORT INFORMATION
  Report Type: 
  Country: None (occurrence: None)
  Receive Date: 20101227
  Receipt Date: 20101218
  Transmission Date: 20110411
  Serious: Yes (Death, Life-Threatening, Hospitalization, Other)
  Sender: FDA-Public Use
  Company Number: US-GENZYME-CLOF-1000007

PATIENT
  Sex: Male
  Weight: 36.4 kg

DRUGS (12)
  1. CLOLAR [Suspect]
     Indication: ACUTE LYMPHOCYTIC LEUKAEMIA
     Dosage: 36 MG, UNK
     Route: 042
     Dates: start: 20071206, end: 20071215
  2. CLOLAR [Suspect]
     Indication: ACUTE MYELOID LEUKAEMIA
  3. CYCLOPHOSPHAMIDE [Suspect]
     Indication: ACUTE LYMPHOCYTIC LEUKAEMIA
     Dosage: 240 MG, UNK
     Route: 042
     Dates: start: 20071205, end: 20071206
  4. CYCLOPHOSPHAMIDE [Suspect]
     Indication: ACUTE MYELOID LEUKAEMIA
     Dosage: 480 MG, UNK
     Route: 042
     Dates: start: 20071207, end: 20071208
  5. CYCLOPHOSPHAMIDE [Suspect]
     Dosage: 480 MG, UNK
     Route: 042
     Dates: start: 20071213, end: 20071215
  6. VANCOMYCIN [Concomitant]
     Indication: EVIDENCE BASED TREATMENT
     Dosage: 440 MG, UNK
     Route: 065
     Dates: start: 20071204, end: 20080110
  7. ALLOPURINOL [Concomitant]
     Indication: PRODUCT USED FOR UNKNOWN INDICATION
     Dosage: UNK
     Route: 065
     Dates: start: 20071204, end: 20071208
  8. AMLODIPINE [Concomitant]
     Indication: PRODUCT USED FOR UNKNOWN INDICATION
     Dosage: UNK
     Route: 065
     Dates: start: 20071202, end: 20071204
  9. CEFEPIME [Concomitant]
     Indication: PRODUCT USED FOR UNKNOWN INDICATION
     Dosage: UNK
     Route: 065
     Dates: start: 20071202, end: 20071204
  10. CEFTRIAXONE [Concomitant]
     Indication: PRODUCT USED FOR UNKNOWN INDICATION
     Dosage: UNK
     Route: 065
     Dates: start: 20071130, end: 20071130
  11. FLUCONAZOLE [Concomitant]
     Indication: PRODUCT USED FOR UNKNOWN INDICATION
     Dosage: UNK
     Route: 065
     Dates: start: 20071202, end: 20071202
  12. LEVOFLOXACIN [Concomitant]
     Indication: PRODUCT USED FOR UNKNOWN INDICATION
     Dosage: UNK
     Route: 065
     Dates: start: 20071130, end: 20071202

REACTIONS (28)
  - ASPARTATE AMINOTRANSFERASE INCREASED [None]
  - BLOOD AMYLASE INCREASED [None]
  - BLOOD CREATINE PHOSPHOKINASE ABNORMAL [None]
  - BLOOD CREATININE INCREASED [None]
  - CARDIOMYOPATHY [None]
  - CARDIOPULMONARY FAILURE [None]
  - COAGULOPATHY [None]
  - FEBRILE NEUTROPENIA [None]
  - FUNGAL INFECTION [None]
  - HYPERBILIRUBINAEMIA [None]
  - HYPOKALAEMIA [None]
  - HYPOTENSION [None]
  - HYPOXIA [None]
  - INFECTION [None]
  - LIPASE ABNORMAL [None]
  - MENTAL STATUS CHANGES [None]
  - MICROANGIOPATHIC HAEMOLYTIC ANAEMIA [None]
  - MYOSITIS [None]
  - PLATELET COUNT DECREASED [None]
  - PLEURAL EFFUSION [None]
  - RENAL FAILURE [None]
  - RESPIRATORY FAILURE [None]
  - SINUS TACHYCARDIA [None]
  - THROMBOTIC THROMBOCYTOPENIC PURPURA [None]
  - TRANSAMINASES INCREASED [None]
  - VENOOCCLUSIVE LIVER DISEASE [None]
  - WHITE BLOOD CELL COUNT DECREASED [None]
  - WHITE BLOOD CELL DISORDER [None]
